FAERS Safety Report 10687301 (Version 1)
Quarter: 2014Q4

REPORT INFORMATION
  Report Type: Spontaneous
  Country: GB (occurrence: None)
  Receive Date: 20141230
  Receipt Date: 20141230
  Transmission Date: 20150529
  Serious: Yes (Life-Threatening)
  Sender: FDA-Public Use
  Company Number: PI-10886

PATIENT
  Age: 62 Year
  Sex: Male

DRUGS (3)
  1. OMNIPAQUE [Concomitant]
     Active Substance: IOHEXOL
  2. CHLORAPREP [Suspect]
     Active Substance: CHLORHEXIDINE GLUCONATE\ISOPROPYL ALCOHOL
     Indication: PREOPERATIVE CARE
     Route: 061
     Dates: start: 20140101
  3. CHLORAPREP [Suspect]
     Active Substance: CHLORHEXIDINE GLUCONATE\ISOPROPYL ALCOHOL
     Indication: THERAPEUTIC SKIN CARE TOPICAL
     Route: 061
     Dates: start: 20140101

REACTIONS (9)
  - Hypotension [None]
  - Pulse absent [None]
  - Blood pressure immeasurable [None]
  - Anaphylactic reaction [None]
  - Generalised erythema [None]
  - Nausea [None]
  - Contrast media reaction [None]
  - Blood pressure systolic decreased [None]
  - Urticaria [None]

NARRATIVE: CASE EVENT DATE: 20140101
